FAERS Safety Report 23454046 (Version 4)
Quarter: 2024Q3

REPORT INFORMATION
  Report Type: Report from Study
  Country: CA (occurrence: CA)
  Receive Date: 20240130
  Receipt Date: 20240911
  Transmission Date: 20241016
  Serious: Yes (Other)
  Sender: TAKEDA
  Company Number: CA-TAKEDA-2024TUS007485

PATIENT
  Age: 77 Year
  Sex: Female

DRUGS (15)
  1. VEDOLIZUMAB [Suspect]
     Active Substance: VEDOLIZUMAB
     Indication: Crohn^s disease
     Dosage: 300 MILLIGRAM
     Route: 042
     Dates: start: 20180404
  2. VEDOLIZUMAB [Suspect]
     Active Substance: VEDOLIZUMAB
     Dosage: 300 MILLIGRAM
     Route: 042
  3. VERZENIO [Suspect]
     Active Substance: ABEMACICLIB
     Indication: Neoplasm malignant
     Dosage: UNK
     Route: 065
  4. PREDNISONE [Concomitant]
     Active Substance: PREDNISONE
     Dosage: UNK
     Dates: start: 20180302, end: 201805
  5. OMEPRAZOLE [Concomitant]
     Active Substance: OMEPRAZOLE
     Dosage: 20 MILLIGRAM
     Route: 048
  6. HYDROCHLOROTHIAZIDE [Concomitant]
     Active Substance: HYDROCHLOROTHIAZIDE
     Dosage: 25 MILLIGRAM
     Route: 048
  7. SYNTHROID [Concomitant]
     Active Substance: LEVOTHYROXINE SODIUM
     Dosage: 0.1 MILLIGRAM
     Route: 048
  8. TIAZAC [Concomitant]
     Active Substance: DILTIAZEM HYDROCHLORIDE
     Dosage: 240 MILLIGRAM
     Route: 048
  9. VITAMIN B12 [Concomitant]
     Active Substance: CYANOCOBALAMIN
     Dosage: 18 MILLIGRAM
     Route: 048
  10. Luteine [Concomitant]
     Dosage: 25 MILLIGRAM
     Route: 048
  11. Mag citrate [Concomitant]
     Dosage: 300 MILLIGRAM
     Route: 048
  12. VITAMIN C [Concomitant]
     Active Substance: ASCORBIC ACID
     Dosage: 600 MILLIGRAM
     Route: 048
  13. UBIQUINOL [Concomitant]
     Active Substance: UBIQUINOL
     Dosage: 100 MILLIGRAM
     Route: 048
  14. 2FLORA [Concomitant]
     Dosage: UNK
     Route: 048
  15. IMODIUM [Concomitant]
     Active Substance: LOPERAMIDE HYDROCHLORIDE
     Dosage: UNK

REACTIONS (3)
  - Breast cancer female [Recovering/Resolving]
  - Diarrhoea [Unknown]
  - Abdominal pain [Unknown]

NARRATIVE: CASE EVENT DATE: 20231223
